FAERS Safety Report 24358902 (Version 2)
Quarter: 2024Q4

REPORT INFORMATION
  Report Type: Spontaneous
  Country: US (occurrence: US)
  Receive Date: 20240924
  Receipt Date: 20241111
  Transmission Date: 20250115
  Serious: No
  Sender: Kenvue
  Company Number: US-JNJFOC-20240931184

PATIENT
  Sex: Female

DRUGS (1)
  1. MENS ROGAINE EXTRA STRENGTH [Suspect]
     Active Substance: MINOXIDIL
     Indication: Product used for unknown indication
     Dosage: 2/3 OF THE DROPPER FREQUENCY TEXT: ONCE IN A DAY
     Route: 061
     Dates: start: 2014

REACTIONS (2)
  - Off label use [Unknown]
  - Suspected counterfeit product [Unknown]

NARRATIVE: CASE EVENT DATE: 20140101
